FAERS Safety Report 8963701 (Version 1)
Quarter: 2012Q4

REPORT INFORMATION
  Report Type: 
  Country: FR (occurrence: FR)
  Receive Date: 20121213
  Receipt Date: 20121213
  Transmission Date: 20130627
  Serious: Yes (Death)
  Sender: FDA-Public Use
  Company Number: FR-ROXANE LABORATORIES, INC.-2012-RO-02555RO

PATIENT
  Age: 37 Year
  Sex: Male
  Weight: 62 kg

DRUGS (3)
  1. ROPINIROLE [Suspect]
  2. PARACETAMOL [Suspect]
  3. ALCOHOL [Suspect]

REACTIONS (1)
  - Toxicity to various agents [Fatal]
